FAERS Safety Report 8732928 (Version 2)
Quarter: 2012Q4

REPORT INFORMATION
  Report Type: 
  Country: US (occurrence: US)
  Receive Date: 20120820
  Receipt Date: 20121018
  Transmission Date: 20130627
  Serious: Yes (Hospitalization, Other)
  Sender: FDA-Public Use
  Company Number: US-ELI_LILLY_AND_COMPANY-US201208002869

PATIENT
  Age: 48 None
  Sex: Female

DRUGS (2)
  1. HUMALOG LISPRO [Suspect]
     Indication: DIABETES MELLITUS
     Dosage: UNK, other
     Dates: start: 2007
  2. HUMALOG LISPRO [Suspect]
     Dosage: UNK, other

REACTIONS (13)
  - Blindness [Unknown]
  - Dyspnoea [Unknown]
  - Blood glucose increased [Unknown]
  - Hospitalisation [Unknown]
  - Glaucoma [Unknown]
  - Blood pressure increased [Unknown]
  - Anxiety [Unknown]
  - Depression [Unknown]
  - Abnormal sensation in eye [Unknown]
  - Retinopathy [Unknown]
  - Optic nerve disorder [Unknown]
  - Blood glucose increased [Unknown]
  - Dyspnoea [Unknown]
